FAERS Safety Report 12853354 (Version 2)
Quarter: 2016Q4

REPORT INFORMATION
  Report Type: Spontaneous
  Country: DK (occurrence: DK)
  Receive Date: 20161017
  Receipt Date: 20161028
  Transmission Date: 20170207
  Serious: Yes (Death, Hospitalization, Other)
  Sender: FDA-Public Use
  Company Number: DK-MYLANLABS-2016M1044387

PATIENT

DRUGS (6)
  1. FOSPHENYTOIN [Suspect]
     Active Substance: FOSPHENYTOIN\FOSPHENYTOIN SODIUM
     Indication: SEIZURE
     Route: 065
  2. NOREPINEPHRINE [Concomitant]
     Active Substance: NOREPINEPHRINE\NOREPINEPHRINE BITARTRATE
     Indication: HYPOTENSION
     Dosage: STARTING DOSE NOT STATED
     Route: 065
  3. NOREPINEPHRINE [Concomitant]
     Active Substance: NOREPINEPHRINE\NOREPINEPHRINE BITARTRATE
     Dosage: INCREASED TO 0.21 MICROGRAMS/KG
     Route: 050
  4. DIAZEPAM. [Concomitant]
     Active Substance: DIAZEPAM
     Indication: SEIZURE
     Route: 065
  5. VENLAFAXINE [Suspect]
     Active Substance: VENLAFAXINE HYDROCHLORIDE
     Indication: PRODUCT USED FOR UNKNOWN INDICATION
     Dosage: 22G
     Route: 048
  6. ORFIRIL [Concomitant]
     Active Substance: VALPROIC ACID
     Indication: SEIZURE
     Route: 065

REACTIONS (17)
  - Intentional overdose [Fatal]
  - Bradycardia [Fatal]
  - Cardiac arrest [Recovered/Resolved]
  - Seizure [Unknown]
  - Arrhythmia [Unknown]
  - Renal impairment [Unknown]
  - Electrocardiogram QT prolonged [Unknown]
  - Cardiac failure [Fatal]
  - Hepatic failure [Fatal]
  - Serotonin syndrome [Unknown]
  - Coma [Unknown]
  - Electrocardiogram ST segment depression [Unknown]
  - Acidosis [Unknown]
  - Hypotension [Unknown]
  - Hyperkalaemia [Unknown]
  - Completed suicide [Fatal]
  - Rhabdomyolysis [Unknown]
